FAERS Safety Report 7241498-3 (Version None)
Quarter: 2011Q1

REPORT INFORMATION
  Report Type: 
  Country: None (occurrence: None)
  Receive Date: 20110124
  Receipt Date: 20110117
  Transmission Date: 20110831
  Serious: Yes (Hospitalization)
  Sender: FDA-Public Use
  Company Number: DE-PFIZER INC-DE-WYE-G06791610

PATIENT
  Age: 67 Year
  Sex: Male
  Weight: 82 kg

DRUGS (5)
  1. TEMSIROLIMUS [Suspect]
     Indication: MANTLE CELL LYMPHOMA
     Dosage: 175 MG, 1 X PER WEEK
     Route: 042
     Dates: start: 20100927, end: 20101004
  2. TAVEGIL [Concomitant]
     Indication: PREMEDICATION
     Dosage: UNK
  3. TAGAMET [Concomitant]
     Indication: PREMEDICATION
  4. LYRICA [Concomitant]
  5. GRANISETRON [Concomitant]
     Indication: PREMEDICATION
     Dosage: 3 MG, UNK

REACTIONS (5)
  - THROMBOCYTOPENIA [None]
  - MOUTH HAEMORRHAGE [None]
  - LEUKOCYTOSIS [None]
  - RASH MACULO-PAPULAR [None]
  - DEVICE RELATED INFECTION [None]
